FAERS Safety Report 7359971-6 (Version None)
Quarter: 2011Q1

REPORT INFORMATION
  Report Type: 
  Country: None (occurrence: None)
  Receive Date: 20110317
  Receipt Date: 20110314
  Transmission Date: 20110831
  Serious: Yes (Hospitalization, Other)
  Sender: FDA-Public Use
  Company Number: GB-ABBOTT-11P-167-0702161-00

PATIENT
  Sex: Female
  Weight: 92 kg

DRUGS (4)
  1. KALETRA [Suspect]
     Indication: HUMAN IMMUNODEFICIENCY VIRUS TRANSMISSION
     Route: 048
     Dates: start: 20100512, end: 20100730
  2. COMBIVIR [Concomitant]
     Indication: PROPHYLAXIS
  3. KALETRA [Suspect]
     Indication: PROPHYLAXIS
  4. COMBIVIR [Concomitant]
     Indication: HUMAN IMMUNODEFICIENCY VIRUS TRANSMISSION
     Route: 048
     Dates: start: 20100512, end: 20100730

REACTIONS (5)
  - PREMATURE RUPTURE OF MEMBRANES [None]
  - MACROCYTOSIS [None]
  - PREMATURE LABOUR [None]
  - HAEMOGLOBIN DECREASED [None]
  - LIVER FUNCTION TEST ABNORMAL [None]
